FAERS Safety Report 14730542 (Version 2)
Quarter: 2018Q2

REPORT INFORMATION
  Report Type: Spontaneous
  Country: DK (occurrence: DK)
  Receive Date: 20180406
  Receipt Date: 20180522
  Transmission Date: 20180711
  Serious: Yes (Hospitalization)
  Sender: FDA-Public Use
  Company Number: DK-BAUSCH-BL-2018-008930

PATIENT
  Age: 76 Year
  Sex: Male
  Weight: 81 kg

DRUGS (14)
  1. OXYNORM [Concomitant]
     Active Substance: OXYCODONE HYDROCHLORIDE
     Indication: MYALGIA
     Route: 048
     Dates: start: 20170523
  2. CALCIUM [Concomitant]
     Active Substance: CALCIUM
     Indication: NUTRITIONAL SUPPLEMENTATION
     Route: 048
     Dates: start: 20161215
  3. FLOXACILLIN SODIUM [Concomitant]
     Active Substance: FLUCLOXACILLIN SODIUM ANHYDROUS
     Indication: BURSITIS
     Route: 048
     Dates: start: 20170523
  4. REVLIMID [Suspect]
     Active Substance: LENALIDOMIDE
     Indication: PLASMA CELL MYELOMA
     Dosage: 315 MG (DOSAGE TEXT: 11.25 MILLIGRAM FOR 28 DAYS)
     Route: 048
     Dates: start: 20161201
  5. ACETYLSALICYL ACID [Concomitant]
     Active Substance: ASPIRIN
     Indication: PROPHYLAXIS
     Dosage: DAILY
     Route: 048
     Dates: start: 20161201
  6. ACICLODAN [Concomitant]
     Indication: ANTIVIRAL PROPHYLAXIS
     Route: 048
     Dates: start: 20170126
  7. TRADOLAN [Concomitant]
     Active Substance: TRAMADOL
     Indication: MYALGIA
     Route: 048
     Dates: start: 20170420
  8. COZAAR [Concomitant]
     Active Substance: LOSARTAN POTASSIUM
     Indication: HYPERTENSION
     Route: 048
     Dates: start: 20160513
  9. DEXAMETHASONE. [Suspect]
     Active Substance: DEXAMETHASONE
     Indication: PLASMA CELL MYELOMA
     Dosage: 20 MG (DOSAGE TEXT: 2.8571 MILLIGRAM) FOR 1 WEEK
     Route: 048
     Dates: start: 20161201
  10. PAMOL [Concomitant]
     Active Substance: ACETAMINOPHEN
     Indication: MYALGIA
     Route: 048
     Dates: start: 20170420
  11. FUROSEMIDE. [Concomitant]
     Active Substance: FUROSEMIDE
     Indication: OEDEMA PERIPHERAL
     Route: 048
     Dates: start: 20170420
  12. OXYCONTIN [Concomitant]
     Active Substance: OXYCODONE HYDROCHLORIDE
     Indication: MYALGIA
     Route: 048
     Dates: start: 20170523
  13. NIVESTIM [Concomitant]
     Active Substance: FILGRASTIM
     Indication: NEUTROPENIA
     Route: 058
     Dates: start: 20170126
  14. MABLET [Concomitant]
     Indication: NUTRITIONAL SUPPLEMENTATION
     Route: 048
     Dates: start: 20161215

REACTIONS (3)
  - Diarrhoea [Recovered/Resolved]
  - Paraesthesia [Not Recovered/Not Resolved]
  - Pulmonary embolism [Recovered/Resolved]

NARRATIVE: CASE EVENT DATE: 20170629
